FAERS Safety Report 9434033 (Version 7)
Quarter: 2014Q1

REPORT INFORMATION
  Report Type: Spontaneous
  Country: US (occurrence: US)
  Receive Date: 20130801
  Receipt Date: 20140226
  Transmission Date: 20141002
  Serious: No
  Sender: FDA-Public Use
  Company Number: US-BIOGENIDEC-2013BI068832

PATIENT
  Sex: Female

DRUGS (2)
  1. AVONEX [Suspect]
     Indication: MULTIPLE SCLEROSIS
     Route: 030
     Dates: start: 19960610
  2. AVONEX [Suspect]
     Indication: MULTIPLE SCLEROSIS
     Route: 030
     Dates: start: 19970715, end: 19980715

REACTIONS (24)
  - Fall [Recovered/Resolved]
  - Panic attack [Unknown]
  - Nuclear magnetic resonance imaging abnormal [Unknown]
  - Gait disturbance [Unknown]
  - Musculoskeletal disorder [Not Recovered/Not Resolved]
  - Cough [Not Recovered/Not Resolved]
  - Nervousness [Not Recovered/Not Resolved]
  - General symptom [Recovered/Resolved]
  - Fear [Not Recovered/Not Resolved]
  - Mobility decreased [Recovered/Resolved]
  - Aspiration [Unknown]
  - Multiple sclerosis [Unknown]
  - Dyspepsia [Not Recovered/Not Resolved]
  - Hemiparesis [Unknown]
  - Tension [Unknown]
  - Balance disorder [Unknown]
  - Pain in extremity [Unknown]
  - Malaise [Recovered/Resolved]
  - Muscular weakness [Recovered/Resolved]
  - Dizziness [Recovered/Resolved]
  - Anxiety [Recovered/Resolved]
  - Arthritis [Not Recovered/Not Resolved]
  - Feeling abnormal [Unknown]
  - Nausea [Unknown]
